FAERS Safety Report 24534471 (Version 1)
Quarter: 2024Q4

REPORT INFORMATION
  Report Type: Report from Study
  Country: US (occurrence: US)
  Receive Date: 20241022
  Receipt Date: 20241022
  Transmission Date: 20250114
  Serious: Yes (Other)
  Sender: JAZZ
  Company Number: US-JAZZ PHARMACEUTICALS-2024-US-005328

PATIENT
  Age: 44 Year
  Sex: Male

DRUGS (8)
  1. SODIUM OXYBATE [Suspect]
     Active Substance: SODIUM OXYBATE
     Indication: Narcolepsy
     Dosage: 0.5 GRAM, BID
  2. SODIUM OXYBATE [Suspect]
     Active Substance: SODIUM OXYBATE
     Indication: Cataplexy
     Dosage: 1.5 GRAM, BID
  3. SODIUM OXYBATE [Suspect]
     Active Substance: SODIUM OXYBATE
     Indication: Somnolence
     Dosage: 2.25 GRAM, BID
  4. SODIUM OXYBATE [Suspect]
     Active Substance: SODIUM OXYBATE
     Dosage: 3 GRAM, BID
  5. SODIUM OXYBATE [Suspect]
     Active Substance: SODIUM OXYBATE
     Dosage: 3.75 GRAM FOR 7 NIGHTS
  6. SODIUM OXYBATE [Suspect]
     Active Substance: SODIUM OXYBATE
     Dosage: 4.5 GRAM, BID
  7. SODIUM OXYBATE [Suspect]
     Active Substance: SODIUM OXYBATE
     Dosage: UNK
  8. DEXAMETHASONE\OFLOXACIN [Suspect]
     Active Substance: DEXAMETHASONE\OFLOXACIN
     Indication: Product used for unknown indication
     Dosage: UNK

REACTIONS (19)
  - Type 2 diabetes mellitus [Unknown]
  - Hunger [Unknown]
  - Sleep deficit [Unknown]
  - Anxiety [Unknown]
  - Dehydration [Unknown]
  - Constipation [Unknown]
  - Feeling jittery [Unknown]
  - Paranoia [Unknown]
  - Unevaluable event [Unknown]
  - Skin exfoliation [Unknown]
  - Brain fog [Unknown]
  - Confusional state [Unknown]
  - Stress [Unknown]
  - Musculoskeletal chest pain [Unknown]
  - Product administration interrupted [Unknown]
  - Therapeutic product effect variable [Unknown]
  - Wrong technique in product usage process [Unknown]
  - Incorrect dosage administered [Unknown]
  - Product dose omission issue [Unknown]

NARRATIVE: CASE EVENT DATE: 20240601
